FAERS Safety Report 6194013-X (Version None)
Quarter: 2009Q2

REPORT INFORMATION
  Report Type: 
  Country: None (occurrence: None)
  Receive Date: 20090518
  Receipt Date: 20090515
  Transmission Date: 20091009
  Serious: Yes (Death, Other)
  Sender: FDA-Public Use
  Company Number: PHBS2006JP17001

PATIENT
  Age: 62 Year
  Sex: Female

DRUGS (4)
  1. NEORAL [Suspect]
     Indication: RENAL TRANSPLANT
     Dosage: 5 MG/KG/D
     Route: 048
     Dates: start: 20000501, end: 20060401
  2. CELLCEPT [Suspect]
     Indication: RENAL TRANSPLANT
     Dosage: 2 G/D
     Route: 048
     Dates: start: 20000501, end: 20060301
  3. PREDONINE [Suspect]
     Indication: RENAL TRANSPLANT
     Dosage: 20 MG/D
     Route: 048
     Dates: start: 20000101
  4. SANDIMMUNE [Concomitant]
     Indication: RENAL TRANSPLANT
     Dosage: UNK
     Route: 048
     Dates: start: 19930101, end: 20000501

REACTIONS (18)
  - ACALCULIA [None]
  - AGNOSIA [None]
  - AGRAPHIA [None]
  - ALEXIA [None]
  - APHASIA [None]
  - APRAXIA [None]
  - CENTRAL NERVOUS SYSTEM NECROSIS [None]
  - DEPRESSED LEVEL OF CONSCIOUSNESS [None]
  - DYSSTASIA [None]
  - GAIT DISTURBANCE [None]
  - HEMIPLEGIA [None]
  - JC VIRUS INFECTION [None]
  - MENTAL IMPAIRMENT [None]
  - MENTAL RETARDATION [None]
  - PERSEVERATION [None]
  - PROGRESSIVE MULTIFOCAL LEUKOENCEPHALOPATHY [None]
  - RENAL FAILURE [None]
  - URINARY TRACT INFECTION [None]
